FAERS Safety Report 23935511 (Version 2)
Quarter: 2024Q2

REPORT INFORMATION
  Report Type: Spontaneous
  Country: US (occurrence: US)
  Receive Date: 20240604
  Receipt Date: 20240604
  Transmission Date: 20240716
  Serious: Yes (Life-Threatening, Hospitalization, Other)
  Sender: FDA-Public Use
  Company Number: US-AUROBINDO-AUR-APL-2024-025960

PATIENT
  Age: 52 Year
  Sex: Female

DRUGS (1)
  1. VENLAFAXINE HYDROCHLORIDE [Suspect]
     Active Substance: VENLAFAXINE HYDROCHLORIDE
     Indication: Product used for unknown indication
     Dosage: 30 DOSAGE FORM
     Route: 065

REACTIONS (9)
  - Acute respiratory distress syndrome [Recovering/Resolving]
  - Electrocardiogram QT prolonged [Unknown]
  - Serotonin syndrome [Recovering/Resolving]
  - Seizure like phenomena [Recovering/Resolving]
  - Respiratory acidosis [Recovering/Resolving]
  - Intentional overdose [Recovering/Resolving]
  - Seizure [Unknown]
  - Cognitive disorder [Unknown]
  - Clonus [Unknown]
